FAERS Safety Report 5397199-X (Version None)
Quarter: 2007Q3

REPORT INFORMATION
  Report Type: 
  Country: None (occurrence: None)
  Receive Date: 20070725
  Receipt Date: 20070713
  Transmission Date: 20080115
  Serious: Yes (Other)
  Sender: FDA-Public Use
  Company Number: US-PFIZER INC-2007057951

PATIENT
  Sex: Female
  Weight: 66 kg

DRUGS (5)
  1. CELEBREX [Suspect]
     Indication: SCIATICA
  2. CELEBREX [Suspect]
     Indication: PAIN IN EXTREMITY
  3. XANAX [Concomitant]
  4. MOTRIN [Concomitant]
  5. ALEVE [Concomitant]

REACTIONS (3)
  - ANAEMIA [None]
  - HAEMORRHAGE [None]
  - PYREXIA [None]
